FAERS Safety Report 8934095 (Version 1)
Quarter: 2012Q4

REPORT INFORMATION
  Report Type: Report from Study
  Country: GB (occurrence: GB)
  Receive Date: 20121129
  Receipt Date: 20121129
  Transmission Date: 20130627
  Serious: Yes (Hospitalization)
  Sender: FDA-Public Use
  Company Number: GB-ROCHE-1161237

PATIENT
  Age: 65 Year
  Sex: Female

DRUGS (6)
  1. BEVACIZUMAB [Suspect]
     Indication: GASTRIC CANCER
     Dosage: Date of most recent administration of drug: 10/Aug/2012
     Route: 042
  2. EPIRUBICIN [Suspect]
     Indication: GASTRIC CANCER
     Dosage: Date of most recent administration of drug: 10/Aug/2012
     Route: 042
  3. CISPLATIN [Suspect]
     Indication: GASTRIC CANCER
     Dosage: Date of most recent administration of drug: 10/Aug/2012
     Route: 042
  4. CAPECITABINE [Suspect]
     Indication: GASTRIC CANCER
     Dosage: Date of most recent administration of drug: 30/Aug/2012
     Route: 048
  5. CALCICHEW D3 FORTE [Concomitant]
     Route: 065
  6. MAGNESIUM GLYCEROPHOSPHATE [Concomitant]

REACTIONS (1)
  - Hypomagnesaemia [Recovered/Resolved]
